FAERS Safety Report 7410104-7 (Version None)
Quarter: 2011Q2

REPORT INFORMATION
  Report Type: 
  Country: None (occurrence: None)
  Receive Date: 20110412
  Receipt Date: 20110330
  Transmission Date: 20111010
  Serious: Yes (Hospitalization)
  Sender: FDA-Public Use
  Company Number: FR-ROCHE-718348

PATIENT
  Sex: Male
  Weight: 61 kg

DRUGS (14)
  1. METOJECT [Suspect]
     Indication: RHEUMATOID ARTHRITIS
     Route: 065
     Dates: start: 20090401, end: 20100201
  2. CORTANCYL [Suspect]
     Route: 048
     Dates: start: 20110101
  3. PARACETAMOL [Concomitant]
     Indication: RHEUMATOID ARTHRITIS
     Route: 048
     Dates: start: 20090520
  4. METHOTREXATE [Concomitant]
     Indication: RHEUMATOID ARTHRITIS
     Route: 058
     Dates: start: 20081101, end: 20091001
  5. ROACTEMRA [Suspect]
     Route: 042
     Dates: start: 20100105, end: 20100203
  6. RIMIFON [Concomitant]
     Dosage: INDICATION: KOCH BACILLUS PREVENTION; 02 DOSES DAILY
     Route: 048
     Dates: start: 20090301
  7. CORTANCYL [Suspect]
     Route: 048
     Dates: start: 20100201
  8. PLAVIX [Concomitant]
     Dosage: 1 DOSE DAILY
     Route: 048
     Dates: start: 20070726
  9. NOVATREX [Suspect]
     Indication: RHEUMATOID ARTHRITIS
     Dosage: 15-30 MG, STOP DATE REPORTED AS APR-2009
     Route: 048
     Dates: start: 20090530
  10. CORTANCYL [Suspect]
     Indication: RHEUMATOID ARTHRITIS
     Route: 048
     Dates: start: 20070701
  11. CORTANCYL [Concomitant]
     Route: 048
     Dates: start: 20090401
  12. TAHOR [Concomitant]
     Dates: start: 20070726
  13. ROACTEMRA [Suspect]
     Indication: RHEUMATOID ARTHRITIS
     Dosage: FORM: INFUSION
     Route: 042
     Dates: start: 20090422, end: 20091207
  14. CORTANCYL [Suspect]
     Route: 048

REACTIONS (2)
  - ANAEMIA MACROCYTIC [None]
  - MYELODYSPLASTIC SYNDROME [None]
